FAERS Safety Report 26199682 (Version 1)
Quarter: 2025Q4

REPORT INFORMATION
  Report Type: Spontaneous
  Country: US (occurrence: US)
  Receive Date: 20251225
  Receipt Date: 20251225
  Transmission Date: 20260118
  Serious: Yes (Other)
  Sender: ALEXION PHARMACEUTICALS
  Company Number: US-AstraZeneca-CH-01020201A

PATIENT
  Age: 68 Year
  Sex: Male

DRUGS (1)
  1. BREZTRI [Suspect]
     Active Substance: BUDESONIDE\FORMOTEROL\GLYCOPYRROLATE
     Dosage: UNK
     Route: 065

REACTIONS (9)
  - Headache [Unknown]
  - Hypoaesthesia oral [Unknown]
  - Anxiety [Unknown]
  - Tremor [Unknown]
  - Pneumonia [Unknown]
  - Wrong technique in product usage process [Unknown]
  - Product dose omission issue [Unknown]
  - Therapy change [Unknown]
  - Memory impairment [Unknown]
